FAERS Safety Report 8497758-1 (Version None)
Quarter: 2012Q3

REPORT INFORMATION
  Report Type: 
  Country: None (occurrence: None)
  Receive Date: 20120709
  Receipt Date: 20120608
  Transmission Date: 20120928
  Serious: No
  Sender: FDA-Public Use
  Company Number: US-AMGEN-USASP2012035852

PATIENT
  Age: 60 Year
  Sex: Female

DRUGS (1)
  1. ENBREL [Suspect]
     Indication: PSORIASIS
     Dosage: UNK

REACTIONS (5)
  - HYPOAESTHESIA [None]
  - CALCINOSIS [None]
  - PSORIASIS [None]
  - FEELING HOT [None]
  - CHEST PAIN [None]
